FAERS Safety Report 19685440 (Version 1)
Quarter: 2021Q3

REPORT INFORMATION
  Report Type: Spontaneous
  Country: US (occurrence: US)
  Receive Date: 20210811
  Receipt Date: 20210811
  Transmission Date: 20211014
  Serious: Yes (Hospitalization)
  Sender: FDA-Public Use
  Company Number: None

PATIENT
  Age: 9 Year
  Sex: Female
  Weight: 41.8 kg

DRUGS (7)
  1. DIPHENHYDRAMINE (BENADRYL) [Concomitant]
  2. CISPLATIN. [Suspect]
     Active Substance: CISPLATIN
     Dates: end: 20210729
  3. ATIVAN [Concomitant]
     Active Substance: LORAZEPAM
  4. BLEOMYCIN [Suspect]
     Active Substance: BLEOMYCIN SULFATE
     Dates: end: 20210729
  5. ZOFRAN [Concomitant]
     Active Substance: ONDANSETRON HYDROCHLORIDE
  6. ETOPOSIDE (VP?16) [Suspect]
     Active Substance: ETOPOSIDE
     Dates: end: 20210729
  7. EMEND (FOSAPREPITANT DIMEGLUMINE) [Concomitant]
     Active Substance: FOSAPREPITANT DIMEGLUMINE

REACTIONS (6)
  - Anxiety [None]
  - Agitation [None]
  - Focal dyscognitive seizures [None]
  - Delirium [None]
  - Headache [None]
  - Intermenstrual bleeding [None]

NARRATIVE: CASE EVENT DATE: 20210729
